FAERS Safety Report 6848207-8 (Version None)
Quarter: 2010Q3

REPORT INFORMATION
  Report Type: 
  Country: None (occurrence: None)
  Receive Date: 20100716
  Receipt Date: 20100708
  Transmission Date: 20110219
  Serious: Yes (Other)
  Sender: FDA-Public Use
  Company Number: B0665614A

PATIENT
  Sex: Female

DRUGS (13)
  1. TYVERB [Suspect]
     Indication: PRODUCT USED FOR UNKNOWN INDICATION
     Dosage: 250MG PER DAY
     Route: 048
     Dates: start: 20091203, end: 20100519
  2. XELODA [Suspect]
     Indication: PRODUCT USED FOR UNKNOWN INDICATION
     Dosage: 500MG UNKNOWN
     Route: 048
  3. RANITIDINE [Concomitant]
  4. DOMPERIDONE [Concomitant]
  5. LEVOTHYROXINE SODIUM [Concomitant]
  6. MODURETIC 5-50 [Concomitant]
  7. KANRENOL [Concomitant]
  8. SPIRIVA [Concomitant]
  9. ELOPRAM [Concomitant]
  10. KCL RETARD [Concomitant]
  11. PROCTOFOAM HC [Concomitant]
  12. IMODIUM [Concomitant]
  13. UNKNOWN DRUG [Concomitant]

REACTIONS (4)
  - DERMATITIS BULLOUS [None]
  - PALMAR-PLANTAR ERYTHRODYSAESTHESIA SYNDROME [None]
  - SKIN FISSURES [None]
  - SKIN TOXICITY [None]
